FAERS Safety Report 6866099-8 (Version None)
Quarter: 2010Q3

REPORT INFORMATION
  Report Type: 
  Country: None (occurrence: None)
  Receive Date: 20100722
  Receipt Date: 20100716
  Transmission Date: 20110219
  Serious: Yes (Other)
  Sender: FDA-Public Use
  Company Number: FR-ELI_LILLY_AND_COMPANY-FR201007003533

PATIENT
  Sex: Female

DRUGS (9)
  1. BYETTA [Suspect]
     Indication: TYPE 2 DIABETES MELLITUS
     Dosage: 5 UG, 2/D
     Route: 048
     Dates: start: 20090901, end: 20091001
  2. BYETTA [Suspect]
     Dosage: 10 UG, 2/D
     Route: 048
     Dates: start: 20091001, end: 20100417
  3. GLUCOPHAGE [Concomitant]
     Dosage: 2550 UNK, DAILY (1/D)
     Route: 065
  4. COTRIATEC [Concomitant]
     Dosage: 5 UNK, 2/D
     Route: 065
  5. CRESTOR [Concomitant]
     Dosage: 20 UNK, DAILY (1/D)
     Route: 065
  6. NEXIUM [Concomitant]
     Dosage: 80 UNK, DAILY (1/D)
     Route: 065
  7. SINTROM [Concomitant]
     Dosage: 1/4 TABLETS UNK, DAILY (1/D)
     Route: 065
  8. DIAMICRON [Concomitant]
     Dosage: 120 UNK, DAILY (1/D)
     Route: 065
  9. DAFALGAN [Concomitant]
     Dosage: 500 UNK, UPON REQUEST
     Route: 065

REACTIONS (3)
  - HEPATIC STEATOSIS [None]
  - PANCREATITIS ACUTE [None]
  - WEIGHT DECREASED [None]
